FAERS Safety Report 22283811 (Version 2)
Quarter: 2023Q2

REPORT INFORMATION
  Report Type: Report from Study
  Country: FR (occurrence: FR)
  Receive Date: 20230504
  Receipt Date: 20230521
  Transmission Date: 20230721
  Serious: Yes (Hospitalization)
  Sender: FDA-Public Use
  Company Number: FR-SA-SAC20230501001992

PATIENT
  Age: 56 Year
  Sex: Female
  Weight: 66.4 kg

DRUGS (4)
  1. ISATUXIMAB [Suspect]
     Active Substance: ISATUXIMAB
     Indication: Minimal residual disease
     Dosage: 10 MG/KG
     Route: 042
     Dates: start: 20220912, end: 20220912
  2. CARFILZOMIB [Suspect]
     Active Substance: CARFILZOMIB
     Indication: Minimal residual disease
     Dosage: 56 MG/M2
     Route: 042
     Dates: start: 20220912, end: 20220912
  3. LENALIDOMIDE [Suspect]
     Active Substance: LENALIDOMIDE
     Indication: Minimal residual disease
     Dosage: 25 MG
     Route: 048
     Dates: start: 20220912, end: 20220912
  4. DEXAMETHASONE [Suspect]
     Active Substance: DEXAMETHASONE
     Indication: Minimal residual disease
     Dosage: 40 MG
     Route: 048
     Dates: start: 20220912, end: 20220912

REACTIONS (1)
  - Respiratory distress [Recovered/Resolved]

NARRATIVE: CASE EVENT DATE: 20230428
